FAERS Safety Report 7674565-0 (Version None)
Quarter: 2011Q3

REPORT INFORMATION
  Report Type: 
  Country: None (occurrence: None)
  Receive Date: 20110810
  Receipt Date: 20110803
  Transmission Date: 20111222
  Serious: Yes (Hospitalization)
  Sender: FDA-Public Use
  Company Number: FR-ROCHE-787923

PATIENT
  Sex: Female
  Weight: 59 kg

DRUGS (2)
  1. DOCETAXEL [Suspect]
     Indication: NON-SMALL CELL LUNG CANCER
     Route: 065
     Dates: start: 20110512
  2. BEVACIZUMAB [Suspect]
     Indication: NON-SMALL CELL LUNG CANCER
     Route: 065
     Dates: end: 20110222

REACTIONS (1)
  - METASTASES TO CENTRAL NERVOUS SYSTEM [None]
